FAERS Safety Report 3962917 (Version 2)
Quarter: 2020Q4

REPORT INFORMATION
  Report Type: Spontaneous
  Country: IN (occurrence: IN)
  Receive Date: 20030618
  Receipt Date: 20201230
  Transmission Date: 20210114
  Serious: Yes (Disabling, Other)
  Sender: FDA-Public Use
  Company Number: PHBS2003IN05785

PATIENT
  Age: 35 Year
  Sex: Male

DRUGS (3)
  1. CLOFAZIMINE [Suspect]
     Active Substance: CLOFAZIMINE
     Indication: LEPROSY
     Dosage: UNK
     Route: 065
  2. RIFAMPICIN [Suspect]
     Active Substance: RIFAMPIN
     Indication: LEPROSY
     Dosage: UNK
     Route: 065
  3. DAPSONE. [Suspect]
     Active Substance: DAPSONE
     Indication: LEPROSY
     Dosage: UNK
     Route: 065

REACTIONS (15)
  - Peripheral sensory neuropathy [Recovering/Resolving]
  - Pain in extremity [Recovering/Resolving]
  - Vibration test abnormal [Recovering/Resolving]
  - Hypoaesthesia oral [Unknown]
  - Tuberculoid leprosy [Recovering/Resolving]
  - Neurological examination abnormal [Recovering/Resolving]
  - Dysstasia [Recovering/Resolving]
  - Athetosis [Recovering/Resolving]
  - Dyskinesia [Recovering/Resolving]
  - Gait inability [Recovering/Resolving]
  - Paraesthesia [Recovering/Resolving]
  - Movement disorder [Recovering/Resolving]
  - Hypoaesthesia [Unknown]
  - Rash erythematous [Recovering/Resolving]
  - Areflexia [Recovering/Resolving]
